FAERS Safety Report 15968275 (Version 2)
Quarter: 2019Q1

REPORT INFORMATION
  Report Type: Report from Study
  Country: US (occurrence: US)
  Receive Date: 20190215
  Receipt Date: 20190325
  Transmission Date: 20190418
  Serious: Yes (Hospitalization, Other)
  Sender: FDA-Public Use
  Company Number: US-GILEAD-2019-0390932

PATIENT
  Age: 29 Year
  Sex: Female

DRUGS (22)
  1. AZTREONAM LYSINE [Suspect]
     Active Substance: AZTREONAM LYSINE
     Indication: LUNG DISORDER
     Dosage: 75 MG
     Route: 055
  2. PULMOZYME [Concomitant]
     Active Substance: DORNASE ALFA
  3. SALINE NASAL MIST [Concomitant]
  4. ATENOLOL. [Concomitant]
     Active Substance: ATENOLOL
  5. TYLENOL [Concomitant]
     Active Substance: ACETAMINOPHEN
  6. SCOPOLAMINE PCH [Concomitant]
  7. TOPAMAX [Concomitant]
     Active Substance: TOPIRAMATE
  8. BISACODYL. [Concomitant]
     Active Substance: BISACODYL
  9. TOBI [Concomitant]
     Active Substance: TOBRAMYCIN
  10. PREVACID [Concomitant]
     Active Substance: LANSOPRAZOLE
  11. ROBINUL [Concomitant]
     Active Substance: GLYCOPYRROLATE
  12. XOPENEX [Concomitant]
     Active Substance: LEVALBUTEROL HYDROCHLORIDE
  13. NYSTATIN. [Concomitant]
     Active Substance: NYSTATIN
  14. LACRILUBE [Concomitant]
  15. ZOFRAN [Concomitant]
     Active Substance: ONDANSETRON HYDROCHLORIDE
  16. EPIPEN JR [Concomitant]
     Active Substance: EPINEPHRINE
  17. FLORASTOR [LACTOBACILLUS ACIDOPHILUS] [Concomitant]
  18. OXYGEN. [Concomitant]
     Active Substance: OXYGEN
  19. AZTREONAM LYSINE [Suspect]
     Active Substance: AZTREONAM LYSINE
     Indication: PSEUDOMONAS INFECTION
  20. KEPPRA [Concomitant]
     Active Substance: LEVETIRACETAM
  21. KETOTIFEN [Concomitant]
     Active Substance: KETOTIFEN
  22. XOLAIR [Concomitant]
     Active Substance: OMALIZUMAB

REACTIONS (2)
  - Pneumonia aspiration [Recovered/Resolved]
  - Off label use [Not Recovered/Not Resolved]
